FAERS Safety Report 7147867-4 (Version None)
Quarter: 2010Q4

REPORT INFORMATION
  Report Type: 
  Country: None (occurrence: None)
  Receive Date: 20101207
  Receipt Date: 20101207
  Transmission Date: 20110411
  Serious: Yes (Hospitalization)
  Sender: FDA-Public Use
  Company Number: None

PATIENT
  Age: 63 Year
  Sex: Female
  Weight: 89.8122 kg

DRUGS (2)
  1. BEXAROTENE - 200 MG/M2 PO DAILY MFR. EISAI [Suspect]
     Indication: ACUTE MYELOID LEUKAEMIA
     Dosage: 200 MG/M2 PO DAILY
     Route: 048
     Dates: end: 20101126
  2. DECITABINE - 20 MG/M2 IV X 5 DAYS PER CYCLE [Suspect]
     Dosage: 20 MG/M2 IV X 5 DAYS
     Route: 042
     Dates: start: 20101102, end: 20101106

REACTIONS (4)
  - ASTHENIA [None]
  - DIARRHOEA [None]
  - FATIGUE [None]
  - VOMITING [None]
